FAERS Safety Report 8581660-0 (Version None)
Quarter: 2012Q3

REPORT INFORMATION
  Report Type: 
  Country: None (occurrence: None)
  Receive Date: 20120801
  Receipt Date: 20120801
  Transmission Date: 20120928
  Serious: No
  Sender: FDA-Public Use
  Company Number: None

PATIENT
  Sex: Female

DRUGS (1)
  1. LOVAZA [Suspect]
     Indication: BLOOD TRIGLYCERIDES INCREASED
     Dosage: 2 GRAMS TWICE A DAY PO
     Route: 048
     Dates: start: 20120725, end: 20120728

REACTIONS (4)
  - VOMITING [None]
  - ABDOMINAL PAIN [None]
  - DIARRHOEA [None]
  - ABDOMINAL PAIN UPPER [None]
